FAERS Safety Report 17065376 (Version 1)
Quarter: 2019Q4

REPORT INFORMATION
  Report Type: Spontaneous
  Country: JP (occurrence: JP)
  Receive Date: 20191122
  Receipt Date: 20191122
  Transmission Date: 20200122
  Serious: Yes (Other)
  Sender: FDA-Public Use
  Company Number: JP-UCBSA-2019048992

PATIENT
  Age: 87 Year
  Sex: Male

DRUGS (3)
  1. E KEPPRA [Suspect]
     Active Substance: LEVETIRACETAM
     Indication: EPILEPSY
     Dosage: 500 MG DAILY
     Route: 041
     Dates: start: 20191024, end: 20191025
  2. E KEPPRA [Suspect]
     Active Substance: LEVETIRACETAM
     Indication: EPILEPSY
     Dosage: 1000 MG DAILY
     Route: 048
     Dates: start: 20191026, end: 20191029
  3. MEROPEN [MEROPENEM TRIHYDRATE] [Concomitant]
     Active Substance: MEROPENEM
     Indication: PRODUCT USED FOR UNKNOWN INDICATION
     Route: 042
     Dates: start: 20191023

REACTIONS (3)
  - Atrial fibrillation [Unknown]
  - Ventricular fibrillation [Recovered/Resolved]
  - Ventricular tachycardia [Unknown]

NARRATIVE: CASE EVENT DATE: 20191028
